FAERS Safety Report 17764895 (Version 1)
Quarter: 2020Q2

REPORT INFORMATION
  Report Type: Report from Study
  Country: None (occurrence: US)
  Receive Date: 20200511
  Receipt Date: 20200511
  Transmission Date: 20200714
  Serious: Yes (Death, Hospitalization)
  Sender: FDA-Public Use
  Company Number: US-INSMED, INC.-US-INS-19-01304

PATIENT
  Age: 65 Year
  Sex: Female

DRUGS (3)
  1. ARIKAYCE [Suspect]
     Active Substance: AMIKACIN
     Route: 055
     Dates: start: 2019
  2. ARIKAYCE [Suspect]
     Active Substance: AMIKACIN
     Indication: MYCOBACTERIAL INFECTION
     Route: 055
     Dates: start: 2019, end: 2019
  3. LAMIRA NEBULIZER SYSTEM [Suspect]
     Active Substance: DEVICE

REACTIONS (7)
  - Therapy interrupted [Unknown]
  - Death [Fatal]
  - Intestinal obstruction [Unknown]
  - Drug ineffective [Unknown]
  - Cough [Unknown]
  - Loss of personal independence in daily activities [Unknown]
  - Insurance issue [Unknown]

NARRATIVE: CASE EVENT DATE: 20190401
